FAERS Safety Report 21541006 (Version 5)
Quarter: 2023Q1

REPORT INFORMATION
  Report Type: Spontaneous
  Country: JP (occurrence: JP)
  Receive Date: 20221102
  Receipt Date: 20230322
  Transmission Date: 20230417
  Serious: Yes (Other)
  Sender: FDA-Public Use
  Company Number: JP-CHUGAI-2022034567

PATIENT
  Age: 8 Decade
  Sex: Female

DRUGS (1)
  1. ENSPRYNG [Suspect]
     Active Substance: SATRALIZUMAB-MWGE
     Indication: Neuromyelitis optica spectrum disorder
     Dosage: MOST RECENT DOSE ON 04/JAN/2023.
     Route: 058
     Dates: start: 20220422

REACTIONS (8)
  - Malaise [Unknown]
  - Malaise [Unknown]
  - Dizziness [Recovered/Resolved]
  - Physical deconditioning [Unknown]
  - Drug specific antibody [Unknown]
  - Diarrhoea [Unknown]
  - Back pain [Unknown]
  - Therapeutic response decreased [Unknown]

NARRATIVE: CASE EVENT DATE: 20230101
